FAERS Safety Report 7509209-1 (Version None)
Quarter: 2011Q2

REPORT INFORMATION
  Report Type: 
  Country: None (occurrence: None)
  Receive Date: 20110519
  Receipt Date: 20110509
  Transmission Date: 20111010
  Serious: Yes (Life-Threatening, Hospitalization, Disabling, Congenital Anomaly, Other)
  Sender: FDA-Public Use
  Company Number: DSJ-2010-06062

PATIENT
  Age: 1 Day
  Sex: Female
  Weight: 1.878 kg

DRUGS (2)
  1. OLMESARTAN MEDOXOMIL [Suspect]
     Indication: HYPERTENSION
     Dosage: 40 MG (40 MG 1 IN 1 D), TRANSPLACENTAL; 5 MG, 1 IN 3 D, TRANSPLACENTAL
     Route: 064
     Dates: start: 20070101, end: 20091022
  2. OLMESARTAN MEDOXOMIL [Suspect]
     Indication: HYPERTENSION
     Dosage: 40 MG (40 MG 1 IN 1 D), TRANSPLACENTAL; 5 MG, 1 IN 3 D, TRANSPLACENTAL
     Route: 064
     Dates: start: 20091023, end: 20100413

REACTIONS (15)
  - NEONATAL RESPIRATORY ARREST [None]
  - PNEUMOTHORAX [None]
  - PERITONEAL DIALYSIS [None]
  - PULMONARY HYPOPLASIA [None]
  - PREMATURE BABY [None]
  - RENAL TUBULAR NECROSIS [None]
  - KIDNEY ENLARGEMENT [None]
  - SKULL MALFORMATION [None]
  - RENAL DYSPLASIA [None]
  - MATERNAL DRUGS AFFECTING FOETUS [None]
  - RENAL FAILURE NEONATAL [None]
  - HEART SOUNDS ABNORMAL [None]
  - NEONATAL HYPOTENSION [None]
  - CAESAREAN SECTION [None]
  - OLIGOHYDRAMNIOS [None]
